FAERS Safety Report 18707102 (Version 1)
Quarter: 2021Q1

REPORT INFORMATION
  Report Type: Spontaneous
  Country: US (occurrence: US)
  Receive Date: 20210106
  Receipt Date: 20210106
  Transmission Date: 20210419
  Serious: Yes (Life-Threatening, Hospitalization, Disabling)
  Sender: FDA-Public Use
  Company Number: None

PATIENT
  Age: 56 Year
  Sex: Female
  Weight: 53.55 kg

DRUGS (5)
  1. VITAMIN D3 [Concomitant]
     Active Substance: CHOLECALCIFEROL
  2. STOOL SOFTENER (DOCUSATE SODIUM) [Suspect]
     Active Substance: DOCUSATE SODIUM
     Indication: CONSTIPATION
     Dosage: ?          QUANTITY:400 CAPSULE(S);?
     Route: 048
     Dates: start: 20130420, end: 20181231
  3. BON E BROTH PROTEIN POWDER [Concomitant]
  4. NEW VEGAN [Concomitant]
  5. SEASONAL HAY FEVER [Concomitant]

REACTIONS (8)
  - Foreign body in throat [None]
  - Dysphagia [None]
  - Cold sweat [None]
  - Dyspnoea [None]
  - Oesophagitis [None]
  - Dizziness [None]
  - Chest pain [None]
  - Oesophageal rupture [None]

NARRATIVE: CASE EVENT DATE: 20181231
